FAERS Safety Report 9264415 (Version 2)
Quarter: 2013Q2

REPORT INFORMATION
  Report Type: Spontaneous
  Country: PH (occurrence: PH)
  Receive Date: 20130430
  Receipt Date: 20130507
  Transmission Date: 20140414
  Serious: Yes (Hospitalization)
  Sender: FDA-Public Use
  Company Number: PH-009507513-1304PHL016852

PATIENT
  Age: 93 Year
  Sex: Female

DRUGS (2)
  1. JANUVIA [Suspect]
     Indication: DIABETES MELLITUS
     Dosage: 1 DF, QD
     Route: 048
  2. VASTAREL [Concomitant]
     Indication: BLOOD CHOLESTEROL ABNORMAL

REACTIONS (5)
  - Hypoglycaemia [Recovered/Resolved]
  - Pneumonia [Unknown]
  - Eating disorder [Recovered/Resolved]
  - Insomnia [Recovered/Resolved]
  - Asthenia [Recovered/Resolved]
